FAERS Safety Report 9473275 (Version 2)
Quarter: 2013Q3

REPORT INFORMATION
  Report Type: Spontaneous
  Country: US (occurrence: US)
  Receive Date: 20130823
  Receipt Date: 20130823
  Transmission Date: 20140515
  Serious: Yes (Other)
  Sender: FDA-Public Use
  Company Number: US-BRISTOL-MYERS SQUIBB COMPANY-18832394

PATIENT
  Age: 41 Year
  Sex: Female
  Weight: 126.98 kg

DRUGS (6)
  1. SPRYCEL [Suspect]
  2. LEXAPRO [Concomitant]
  3. SINGULAIR [Concomitant]
     Dosage: AT NIGHT
  4. OXYCODONE [Concomitant]
  5. TRAMADOL [Concomitant]
  6. METFORMIN [Concomitant]

REACTIONS (8)
  - Diarrhoea [Unknown]
  - Abdominal pain upper [Unknown]
  - Headache [Unknown]
  - Bone pain [Unknown]
  - Vomiting [Unknown]
  - Alopecia [Unknown]
  - Nausea [Unknown]
  - Rash [Unknown]
